FAERS Safety Report 12711410 (Version 3)
Quarter: 2016Q4

REPORT INFORMATION
  Report Type: Spontaneous
  Country: US (occurrence: US)
  Receive Date: 20160902
  Receipt Date: 20161102
  Transmission Date: 20170207
  Serious: No
  Sender: FDA-Public Use
  Company Number: US-PFIZER INC-2016185113

PATIENT
  Age: 55 Year
  Sex: Male
  Weight: 64 kg

DRUGS (4)
  1. SUTENT [Suspect]
     Active Substance: SUNITINIB MALATE
     Dosage: 37.5 MG, DAILY
     Route: 048
     Dates: start: 20160101, end: 20160101
  2. SUTENT [Suspect]
     Active Substance: SUNITINIB MALATE
     Indication: RENAL CELL CARCINOMA
     Dosage: 37.5 MG, DAILY
     Route: 048
     Dates: start: 20151228, end: 20151228
  3. SUTENT [Suspect]
     Active Substance: SUNITINIB MALATE
     Dosage: 50 MG, CYCLIC (DAILY FOR 4 WEEKS ON AND 2) (Q DAY FOR 4 WEEKS ON AND 1 WEEKS OFF)
     Route: 048
     Dates: start: 20151230, end: 201608
  4. SUTENT [Suspect]
     Active Substance: SUNITINIB MALATE
     Dosage: 37 MG, CYCLIC (4 WEEKS, 2 WEEKS OFF)
     Route: 048
     Dates: start: 201512, end: 2016

REACTIONS (5)
  - Neoplasm progression [Unknown]
  - Nausea [Unknown]
  - Vomiting [Unknown]
  - Decreased appetite [Unknown]
  - Weight decreased [Unknown]
